FAERS Safety Report 19501514 (Version 1)
Quarter: 2021Q3

REPORT INFORMATION
  Report Type: Spontaneous
  Country: ES (occurrence: ES)
  Receive Date: 20210707
  Receipt Date: 20210707
  Transmission Date: 20211014
  Serious: Yes (Other)
  Sender: FDA-Public Use
  Company Number: ES-JNJFOC-20210664791

PATIENT
  Age: 45 Year
  Sex: Male
  Weight: 92 kg

DRUGS (1)
  1. TOPAMAX [Suspect]
     Active Substance: TOPIRAMATE
     Indication: TENSION HEADACHE
     Dosage: 1 PILL AT NIGHT
     Route: 048
     Dates: start: 20210526, end: 20210530

REACTIONS (3)
  - Facial paralysis [Not Recovered/Not Resolved]
  - Product use in unapproved indication [Unknown]
  - Off label use [Unknown]

NARRATIVE: CASE EVENT DATE: 20210526
